FAERS Safety Report 10711671 (Version 1)
Quarter: 2015Q1

REPORT INFORMATION
  Report Type: Spontaneous
  Country: US (occurrence: US)
  Receive Date: 20150114
  Receipt Date: 20150114
  Transmission Date: 20150721
  Serious: Yes (Other)
  Sender: FDA-Public Use
  Company Number: US-SHIRE-US201500143

PATIENT
  Sex: Female
  Weight: 104.31 kg

DRUGS (4)
  1. MULTIVITAMINS, PLAIN [Concomitant]
     Active Substance: VITAMINS
     Indication: NUTRITIONAL SUPPLEMENTATION
     Dosage: 1 TABLET, 1X/DAY:QD
     Route: 065
     Dates: start: 2004
  2. COLESTIPOL [Concomitant]
     Active Substance: COLESTIPOL
     Indication: ABNORMAL FAECES
     Dosage: 2 G, 2X/DAY:BID (TWO 1 G TABLETS MORNING AND NIGHT)
     Route: 065
     Dates: start: 2008
  3. CALCIUM + VITAMIN D                /00944201/ [Concomitant]
     Active Substance: CALCIUM\VITAMIN D
     Indication: NUTRITIONAL SUPPLEMENTATION
     Dosage: 600 MG, 1X/DAY:QD
     Route: 065
     Dates: start: 2004
  4. PENTASA [Suspect]
     Active Substance: MESALAMINE
     Indication: CROHN^S DISEASE
     Dosage: 1000 MG, (TWO 500 MG CAPSULES) 2X/DAY:BID
     Route: 048
     Dates: start: 2004

REACTIONS (7)
  - Palpitations [Not Recovered/Not Resolved]
  - Crohn^s disease [Recovered/Resolved]
  - Vitamin B12 deficiency [Not Recovered/Not Resolved]
  - Anxiety [Not Recovered/Not Resolved]
  - Gastrooesophageal reflux disease [Not Recovered/Not Resolved]
  - Overweight [Not Recovered/Not Resolved]
  - Product use issue [Not Recovered/Not Resolved]

NARRATIVE: CASE EVENT DATE: 2004
